FAERS Safety Report 7353964-0 (Version None)
Quarter: 2011Q1

REPORT INFORMATION
  Report Type: 
  Country: None (occurrence: None)
  Receive Date: 20110315
  Receipt Date: 20110301
  Transmission Date: 20110831
  Serious: Yes (Hospitalization)
  Sender: FDA-Public Use
  Company Number: PHHY2010US83309

PATIENT
  Sex: Male
  Weight: 83.447 kg

DRUGS (12)
  1. ASPIRIN [Concomitant]
  2. EXJADE [Suspect]
     Indication: IRON OVERLOAD
     Dosage: 1700 MG, QD
     Route: 048
     Dates: start: 20100404
  3. EXJADE [Suspect]
     Dosage: 1750 MG DAILY
     Route: 048
  4. EPOGEN [Concomitant]
  5. EXJADE [Suspect]
     Dosage: 1000 MG DAILY
     Route: 048
  6. EXJADE [Suspect]
     Indication: MYELODYSPLASTIC SYNDROME
     Dosage: 1000 MG, QD
     Route: 048
     Dates: start: 20100325
  7. GRANULOCYTE COLONY STIMULATING FACTOR [Concomitant]
  8. COZAAR [Concomitant]
  9. DECITABINE [Concomitant]
     Dosage: 20 MG/M2 FOR 11 CYLCES
     Dates: start: 20080901
  10. DECITABINE [Concomitant]
     Dosage: 20 MG/M2 FOR 11 CYLCES, THIS WAS LAST DOSE OF 11TH CYCLE
     Dates: start: 20100225
  11. AMLODIPINE [Concomitant]
  12. CLOPIDOGREL [Concomitant]

REACTIONS (5)
  - CONSTIPATION [None]
  - ANAEMIA [None]
  - BLOOD PRESSURE DECREASED [None]
  - OEDEMA PERIPHERAL [None]
  - PRESYNCOPE [None]
